FAERS Safety Report 23168079 (Version 1)
Quarter: 2023Q4

REPORT INFORMATION
  Report Type: Other
  Country: KR (occurrence: None)
  Receive Date: 20231109
  Receipt Date: 20231109
  Transmission Date: 20240110
  Serious: Yes (Other)
  Sender: FDA-Public Use
  Company Number: KR-ROCHE-3453037

PATIENT

DRUGS (2)
  1. ATEZOLIZUMAB [Suspect]
     Active Substance: ATEZOLIZUMAB
     Indication: Hepatocellular carcinoma
     Route: 065
  2. BEVACIZUMAB [Suspect]
     Active Substance: BEVACIZUMAB
     Indication: Hepatocellular carcinoma
     Route: 065

REACTIONS (9)
  - Haemorrhage [Unknown]
  - White blood cell count increased [Unknown]
  - White blood cell count decreased [Unknown]
  - Platelet count decreased [Unknown]
  - Aspartate aminotransferase increased [Unknown]
  - Blood albumin decreased [Unknown]
  - Blood bilirubin increased [Unknown]
  - Pyrexia [Unknown]
  - Alanine aminotransferase increased [Unknown]
